FAERS Safety Report 5702278-0 (Version None)
Quarter: 2008Q2

REPORT INFORMATION
  Report Type: 
  Country: None (occurrence: None)
  Receive Date: 20080411
  Receipt Date: 20080328
  Transmission Date: 20081010
  Serious: Yes (Hospitalization)
  Sender: FDA-Public Use
  Company Number: US-AMGEN-QUU271795

PATIENT
  Age: 28 Year
  Sex: Female

DRUGS (3)
  1. ARANESP [Suspect]
     Indication: DIALYSIS
  2. EPOGEN [Suspect]
     Indication: DIALYSIS
  3. PROGRAF [Concomitant]

REACTIONS (7)
  - COMA [None]
  - COMPLICATIONS OF TRANSPLANTED KIDNEY [None]
  - ENCEPHALITIS [None]
  - PHARYNGOLARYNGEAL PAIN [None]
  - PLATELET COUNT DECREASED [None]
  - SINUS HEADACHE [None]
  - THERAPEUTIC RESPONSE DECREASED [None]
